FAERS Safety Report 7908906-3 (Version None)
Quarter: 2011Q4

REPORT INFORMATION
  Report Type: 
  Country: None (occurrence: None)
  Receive Date: 20111111
  Receipt Date: 20111108
  Transmission Date: 20120403
  Serious: Yes (Death, Other)
  Sender: FDA-Public Use
  Company Number: JP-BRISTOL-MYERS SQUIBB COMPANY-16223570

PATIENT
  Age: 66 Year
  Sex: Male

DRUGS (1)
  1. TAXOL [Suspect]
     Indication: BILE DUCT CANCER
     Route: 041
     Dates: start: 20111019

REACTIONS (1)
  - BONE MARROW FAILURE [None]
